FAERS Safety Report 10935048 (Version 1)
Quarter: 2015Q1

REPORT INFORMATION
  Report Type: Spontaneous
  Country: JP (occurrence: JP)
  Receive Date: 20150320
  Receipt Date: 20150320
  Transmission Date: 20150721
  Serious: Yes (Hospitalization)
  Sender: FDA-Public Use
  Company Number: JP-009507513-1503JPN007369

PATIENT
  Sex: Male

DRUGS (1)
  1. PROPECIA [Suspect]
     Active Substance: FINASTERIDE
     Dosage: 2.5 MG, QD; DIVIDED DOSE
     Route: 048

REACTIONS (3)
  - Adverse event [Unknown]
  - Wrong technique in drug usage process [Unknown]
  - Overdose [Unknown]
